FAERS Safety Report 4280037-6 (Version None)
Quarter: 2004Q1

REPORT INFORMATION
  Report Type: 
  Country: None (occurrence: None)
  Receive Date: 20040126
  Receipt Date: 20040112
  Transmission Date: 20041129
  Serious: Yes (Disabling)
  Sender: FDA-Public Use
  Company Number: 2004-UK-00023UK

PATIENT
  Age: 72 Year
  Sex: Female

DRUGS (4)
  1. MICARDIS (TELMISARTAN) (NR) [Suspect]
     Indication: HYPERTENSION
     Dosage: 80 MG PO
     Route: 048
     Dates: start: 20030811, end: 20031219
  2. SIMVASTATIN [Concomitant]
  3. SODIUM VALPROATE [Concomitant]
  4. LERCARNIDIPINE (LERCANIDIPINE) [Concomitant]

REACTIONS (3)
  - BLOOD CREATINE INCREASED [None]
  - BLOOD CREATINE PHOSPHOKINASE INCREASED [None]
  - BLOOD POTASSIUM INCREASED [None]
